FAERS Safety Report 6144725-9 (Version None)
Quarter: 2009Q2

REPORT INFORMATION
  Report Type: 
  Country: None (occurrence: None)
  Receive Date: 20090406
  Receipt Date: 20090327
  Transmission Date: 20091009
  Serious: Yes (Other)
  Sender: FDA-Public Use
  Company Number: US-WYE-H08738009

PATIENT
  Sex: Female
  Weight: 54.48 kg

DRUGS (3)
  1. PRISTIQ [Suspect]
     Indication: BIPOLAR DISORDER
     Route: 048
     Dates: start: 20081027, end: 20090320
  2. IBUPROFEN [Suspect]
     Indication: BACK INJURY
     Dosage: 400-600 MG DAILY
     Dates: start: 20090101, end: 20090321
  3. CLONAZEPAM [Concomitant]
     Dosage: 0.5 MG AS NEEDED THREE TIMES/DAY

REACTIONS (8)
  - ABDOMINAL PAIN LOWER [None]
  - BACK PAIN [None]
  - DIARRHOEA [None]
  - HAEMORRHOIDS [None]
  - LOWER GASTROINTESTINAL HAEMORRHAGE [None]
  - NAUSEA [None]
  - RECTAL HAEMORRHAGE [None]
  - VOMITING [None]
